FAERS Safety Report 7660169-2 (Version None)
Quarter: 2011Q3

REPORT INFORMATION
  Report Type: 
  Country: None (occurrence: None)
  Receive Date: 20110805
  Receipt Date: 20110729
  Transmission Date: 20111222
  Serious: Yes (Hospitalization)
  Sender: FDA-Public Use
  Company Number: PHHY2011US69140

PATIENT
  Sex: Female

DRUGS (1)
  1. EXTAVIA [Suspect]
     Indication: MULTIPLE SCLEROSIS
     Dosage: 0.25 MG, QOD
     Route: 058
     Dates: start: 20100727

REACTIONS (6)
  - GASTROENTERITIS VIRAL [None]
  - MUSCLE SPASMS [None]
  - VOMITING [None]
  - NAUSEA [None]
  - HEADACHE [None]
  - MULTIPLE SCLEROSIS RELAPSE [None]
